FAERS Safety Report 7578311-0 (Version None)
Quarter: 2011Q2

REPORT INFORMATION
  Report Type: 
  Country: None (occurrence: None)
  Receive Date: 20110628
  Receipt Date: 20110127
  Transmission Date: 20111010
  Serious: Yes (Hospitalization)
  Sender: FDA-Public Use
  Company Number: US-BAYER-201039835NA

PATIENT
  Age: 27 Year
  Sex: Female
  Weight: 88.435 kg

DRUGS (5)
  1. LEVOTHYROXINE SODIUM [Concomitant]
     Dosage: UNK
     Dates: start: 20060101
  2. ASCORBIC ACID [Concomitant]
     Indication: THYROID DISORDER
     Dosage: UNK
     Dates: start: 20060101
  3. PHENTERMINE [Concomitant]
  4. YASMIN [Suspect]
     Indication: ACNE
     Dosage: UNK
     Dates: start: 20031101, end: 20060601
  5. YASMIN [Suspect]
     Indication: MENORRHAGIA

REACTIONS (7)
  - PULMONARY EMBOLISM [None]
  - DEPRESSION [None]
  - PAIN [None]
  - INJURY [None]
  - DYSPNOEA [None]
  - DEEP VEIN THROMBOSIS [None]
  - MENTAL DISORDER [None]
